FAERS Safety Report 22227500 (Version 1)
Quarter: 2023Q2

REPORT INFORMATION
  Report Type: Spontaneous
  Country: ZA (occurrence: ZA)
  Receive Date: 20230419
  Receipt Date: 20230419
  Transmission Date: 20230721
  Serious: Yes (Hospitalization, Other)
  Sender: FDA-Public Use
  Company Number: ZA-CIPLA (EU) LIMITED-2023ZA02014

PATIENT

DRUGS (9)
  1. EFAVIRENZ\EMTRICITABINE\TENOFOVIR DISOPROXIL FUMARATE [Suspect]
     Active Substance: EFAVIRENZ\EMTRICITABINE\TENOFOVIR DISOPROXIL FUMARATE
     Indication: HIV infection
     Dosage: UNK, FIRST LINE (UNKNOWN ROUTE)
     Dates: start: 20170109, end: 20181204
  2. TENOFOVIR [Suspect]
     Active Substance: TENOFOVIR
     Indication: HIV infection
     Dosage: UNK, SECOND LINE (UNKNOWN ROUTE)
     Dates: start: 20181204, end: 20200818
  3. TENOFOVIR [Suspect]
     Active Substance: TENOFOVIR
     Dosage: 300 MG, THIRD LINE (UNKNOWN ROUTE)
     Dates: start: 202104
  4. LOPINAVIR\RITONAVIR [Suspect]
     Active Substance: LOPINAVIR\RITONAVIR
     Indication: HIV infection
     Dosage: UNK (UNKNOWN ROUTE)
     Dates: start: 20181204, end: 20200818
  5. ZIDOVUDINE [Suspect]
     Active Substance: ZIDOVUDINE
     Indication: HIV infection
     Dosage: UNK (UNKNOWN ROUTE)
     Dates: start: 20200818, end: 202104
  6. LAMIVUDINE [Suspect]
     Active Substance: LAMIVUDINE
     Indication: HIV infection
     Dosage: UNK (UNKNOWN ROUTE)
     Dates: start: 20200818, end: 202104
  7. LAMIVUDINE [Suspect]
     Active Substance: LAMIVUDINE
     Dosage: 300 MG, THIRD LINE (UNKNOWN ROUTE)
     Dates: start: 202104
  8. ATAZANAVIR\RITONAVIR [Suspect]
     Active Substance: ATAZANAVIR\RITONAVIR
     Indication: HIV infection
     Dosage: UNK (UNKNOWN ROUTE)
     Dates: start: 20200818, end: 202104
  9. EMTRICITABINE [Suspect]
     Active Substance: EMTRICITABINE
     Indication: HIV infection
     Dosage: UNK, SECOND LINE (UNKNOWN ROUTE)
     Dates: start: 20181204, end: 20200818

REACTIONS (5)
  - Virologic failure [Unknown]
  - Multiple-drug resistance [Unknown]
  - Diarrhoea [Unknown]
  - Normochromic normocytic anaemia [Unknown]
  - Treatment noncompliance [Unknown]

NARRATIVE: CASE EVENT DATE: 20170901
